FAERS Safety Report 5588015-1 (Version None)
Quarter: 2008Q1

REPORT INFORMATION
  Report Type: 
  Country: None (occurrence: None)
  Receive Date: 20080111
  Receipt Date: 20071228
  Transmission Date: 20080703
  Serious: Yes (Other)
  Sender: FDA-Public Use
  Company Number: US-PFIZER INC-2008000121

PATIENT
  Sex: Female
  Weight: 57 kg

DRUGS (1)
  1. DEPO-PROVERA SUSPENSION/INJ [Suspect]
     Indication: UTERINE HAEMORRHAGE
     Dates: start: 20050801, end: 20050801

REACTIONS (3)
  - JOINT SPRAIN [None]
  - SPEECH DISORDER [None]
  - THROMBOPHLEBITIS SUPERFICIAL [None]
